FAERS Safety Report 12807907 (Version 1)
Quarter: 2016Q4

REPORT INFORMATION
  Report Type: Spontaneous
  Country: US (occurrence: US)
  Receive Date: 20161004
  Receipt Date: 20161004
  Transmission Date: 20170207
  Serious: No
  Sender: FDA-Public Use
  Company Number: US-AMGEN-USASP2016115595

PATIENT
  Age: 64 Year
  Sex: Male

DRUGS (1)
  1. XGEVA [Suspect]
     Active Substance: DENOSUMAB
     Indication: METASTASES TO BONE
     Dosage: UNK UNK, QMO
     Route: 065
     Dates: start: 2015

REACTIONS (4)
  - Toothache [Unknown]
  - Pain in jaw [Unknown]
  - Jaw disorder [Unknown]
  - Mastication disorder [Unknown]

NARRATIVE: CASE EVENT DATE: 201608
